FAERS Safety Report 25382452 (Version 1)
Quarter: 2025Q2

REPORT INFORMATION
  Report Type: Spontaneous
  Country: US (occurrence: US)
  Receive Date: 20250601
  Receipt Date: 20250601
  Transmission Date: 20250716
  Serious: Yes (Hospitalization)
  Sender: UCB
  Company Number: US-UCBSA-2025031788

PATIENT
  Sex: Female
  Weight: 103.41 kg

DRUGS (1)
  1. BIMZELX [Suspect]
     Active Substance: BIMEKIZUMAB-BKZX
     Indication: Psoriasis
     Dosage: 320 MILLIGRAM, EV 4 WEEKS
     Route: 058

REACTIONS (2)
  - Migraine [Unknown]
  - Vertigo [Unknown]

NARRATIVE: CASE EVENT DATE: 20250101
